FAERS Safety Report 8597611-9 (Version None)
Quarter: 2012Q3

REPORT INFORMATION
  Report Type: 
  Country: None (occurrence: None)
  Receive Date: 20120816
  Receipt Date: 20120810
  Transmission Date: 20120928
  Serious: Yes (Other)
  Sender: FDA-Public Use
  Company Number: US-BAYER-2012-082971

PATIENT
  Age: 56 Year
  Sex: Female
  Weight: 97.052 kg

DRUGS (8)
  1. MIRAPEX [Concomitant]
     Indication: SLEEP DISORDER
     Dosage: 1 MG, HS
     Route: 048
  2. ATENOLOL [Concomitant]
     Dosage: 25 MG, UNK
  3. NUVIGIL [Suspect]
     Indication: SLEEP APNOEA SYNDROME
     Dosage: 250 MG, QD
     Route: 048
     Dates: start: 20111024
  4. ASPIRIN [Concomitant]
     Dosage: 81 MG, QD
     Route: 048
  5. CRESTOR [Concomitant]
     Dosage: 20 MG, UNK
  6. BUPROPION HYDROCHLORIDE [Concomitant]
     Dosage: 150 MG, UNK
  7. CIPROFLOXACIN HCL [Suspect]
     Dosage: 0.3 %, UNK
     Route: 031
  8. CITALOPRAM [Concomitant]
     Dosage: 40 MG, UNK

REACTIONS (4)
  - WEIGHT INCREASED [None]
  - HYPOPNOEA [None]
  - RASH [None]
  - STEVENS-JOHNSON SYNDROME [None]
